FAERS Safety Report 23221809 (Version 1)
Quarter: 2023Q4

REPORT INFORMATION
  Report Type: Spontaneous
  Country: US (occurrence: US)
  Receive Date: 20231123
  Receipt Date: 20231123
  Transmission Date: 20240110
  Serious: No
  Sender: FDA-Public Use
  Company Number: US-ALEMBIC PHARMACUETICALS LIMITED-2023SCAL001055

PATIENT

DRUGS (8)
  1. LIDOCAINE [Suspect]
     Active Substance: LIDOCAINE
     Indication: Infusion site pain
     Dosage: UNK
     Route: 065
     Dates: start: 202310
  2. REMODULIN [Concomitant]
     Active Substance: TREPROSTINIL
     Indication: Pulmonary arterial hypertension
     Dosage: 0.008 MICROGRAM PER KILOGRAM
     Route: 058
     Dates: start: 202309
  3. REMODULIN [Concomitant]
     Active Substance: TREPROSTINIL
     Dosage: 0.00787 MICROGRAM PER KILOGRAM
     Route: 058
     Dates: start: 2023
  4. REMODULIN [Concomitant]
     Active Substance: TREPROSTINIL
     Dosage: 0.00926 MICROGRAM PER KILOGRAM
     Route: 058
     Dates: start: 2023
  5. REMODULIN [Concomitant]
     Active Substance: TREPROSTINIL
     Dosage: UNK
     Route: 058
     Dates: start: 2023
  6. TRIAMCINOLONE ACETONIDE [Concomitant]
     Active Substance: TRIAMCINOLONE ACETONIDE
     Indication: Infusion site erythema
  7. TRIAMCINOLONE ACETONIDE [Concomitant]
     Active Substance: TRIAMCINOLONE ACETONIDE
     Indication: Infusion site swelling
  8. TIGER BALM [CAMPHOR;MELALEUCA LEUCADENDRA OIL;MENTHA SPP. OIL;MENTHOL; [Concomitant]
     Indication: Infusion site pain
     Dosage: UNK
     Route: 065
     Dates: start: 2023

REACTIONS (1)
  - Drug ineffective [Unknown]
